FAERS Safety Report 7664078-4 (Version None)
Quarter: 2011Q3

REPORT INFORMATION
  Report Type: 
  Country: None (occurrence: None)
  Receive Date: 20110805
  Receipt Date: 20100823
  Transmission Date: 20111222
  Serious: No
  Sender: FDA-Public Use
  Company Number: US-ABBOTT-10P-163-0665750-00

PATIENT
  Sex: Female
  Weight: 74.91 kg

DRUGS (5)
  1. LEVOTHYROXINE SODIUM [Concomitant]
     Indication: PRODUCT USED FOR UNKNOWN INDICATION
  2. UNKNOWN MEDICATION [Concomitant]
     Indication: RENAL DISORDER
  3. UNKNOWN MEDICATION [Concomitant]
     Indication: BLOOD PRESSURE
  4. NOVOLIN 70/30 [Concomitant]
     Indication: PRODUCT USED FOR UNKNOWN INDICATION
  5. NIASPAN [Suspect]
     Indication: HYPERLIPIDAEMIA
     Dates: start: 20100819, end: 20100820

REACTIONS (2)
  - FEELING HOT [None]
  - FLUSHING [None]
